FAERS Safety Report 14601125 (Version 2)
Quarter: 2018Q3

REPORT INFORMATION
  Report Type: Spontaneous
  Country: US (occurrence: US)
  Receive Date: 20180305
  Receipt Date: 20180820
  Transmission Date: 20181010
  Serious: Yes (Other)
  Sender: FDA-Public Use
  Company Number: US-ELI_LILLY_AND_COMPANY-US201802009740

PATIENT
  Age: 59 Year
  Sex: Male
  Weight: 102.49 kg

DRUGS (1)
  1. TALTZ [Suspect]
     Active Substance: IXEKIZUMAB
     Indication: PSORIASIS
     Dosage: 80 MG, UNKNOWN
     Route: 065
     Dates: start: 201710, end: 201802

REACTIONS (1)
  - Lentigo maligna [Recovering/Resolving]

NARRATIVE: CASE EVENT DATE: 20180205
